FAERS Safety Report 21748118 (Version 1)
Quarter: 2022Q4

REPORT INFORMATION
  Report Type: Spontaneous
  Country: US (occurrence: US)
  Receive Date: 20221219
  Receipt Date: 20221219
  Transmission Date: 20230112
  Serious: Yes (Death, Other)
  Sender: FDA-Public Use
  Company Number: US-PFIZER INC-202201372472

PATIENT
  Age: 88 Year
  Sex: Male
  Weight: 63.5 kg

DRUGS (1)
  1. VYNDAMAX [Suspect]
     Active Substance: TAFAMIDIS
     Indication: Amyloidosis
     Dosage: 61 MG, 1X/DAY
     Dates: start: 202103

REACTIONS (6)
  - Death [Fatal]
  - Atrial fibrillation [Unknown]
  - Hiatus hernia [Unknown]
  - Cardiac disorder [Unknown]
  - Lung disorder [Unknown]
  - Heart rate increased [Unknown]

NARRATIVE: CASE EVENT DATE: 20221209
